FAERS Safety Report 13337138 (Version 1)
Quarter: 2017Q1

REPORT INFORMATION
  Report Type: Report from Study
  Country: US (occurrence: US)
  Receive Date: 20170314
  Receipt Date: 20170314
  Transmission Date: 20170428
  Serious: Yes (Hospitalization, Other)
  Sender: FDA-Public Use
  Company Number: US-JAZZ-2016-US-019541

PATIENT
  Sex: Female

DRUGS (2)
  1. VERSACLOZ [Suspect]
     Active Substance: CLOZAPINE
     Dosage: 50 MG, QD
  2. VERSACLOZ [Suspect]
     Active Substance: CLOZAPINE
     Indication: PRODUCT USED FOR UNKNOWN INDICATION
     Dosage: UNK MG, QD

REACTIONS (1)
  - Pneumonia [Unknown]
